FAERS Safety Report 5793839-1 (Version None)
Quarter: 2008Q2

REPORT INFORMATION
  Report Type: 
  Country: None (occurrence: None)
  Receive Date: 20080627
  Receipt Date: 20080620
  Transmission Date: 20081010
  Serious: Yes (Other)
  Sender: FDA-Public Use
  Company Number: GR-BOEHRINGER INGELHEIM GMBH, GERMANY-2008-BP-09605RO

PATIENT
  Age: 30 Year
  Sex: Female

DRUGS (3)
  1. DIAZEPAM [Suspect]
     Indication: BIPOLAR I DISORDER
  2. QUETIAPINE FUMARATE [Suspect]
     Indication: BIPOLAR I DISORDER
  3. GABAPENTIN [Suspect]
     Indication: BIPOLAR I DISORDER

REACTIONS (3)
  - ACTIVITIES OF DAILY LIVING IMPAIRED [None]
  - SIMPLE PARTIAL SEIZURES [None]
  - SOMNOLENCE [None]
